FAERS Safety Report 4371518-5 (Version None)
Quarter: 2004Q2

REPORT INFORMATION
  Report Type: 
  Country: None (occurrence: None)
  Receive Date: 20040602
  Receipt Date: 20040517
  Transmission Date: 20050107
  Serious: No
  Sender: FDA-Public Use
  Company Number: BDI-006147

PATIENT
  Age: 35 Year
  Sex: Male

DRUGS (3)
  1. KINEVAC [Suspect]
     Indication: ABDOMINAL PAIN
     Dosage: 1.2 ML ONCE IV
     Route: 042
     Dates: start: 20040517, end: 20040517
  2. KINEVAC [Suspect]
     Indication: SCAN
     Dosage: 1.2 ML ONCE IV
     Route: 042
     Dates: start: 20040517, end: 20040517
  3. CHOLETEC [Concomitant]

REACTIONS (4)
  - ERYTHEMA [None]
  - HYPERHIDROSIS [None]
  - HYPERTENSION [None]
  - LOSS OF CONSCIOUSNESS [None]
